FAERS Safety Report 7713235-7 (Version None)
Quarter: 2011Q3

REPORT INFORMATION
  Report Type: 
  Country: None (occurrence: None)
  Receive Date: 20110826
  Receipt Date: 20110822
  Transmission Date: 20111222
  Serious: Yes (Death, Other)
  Sender: FDA-Public Use
  Company Number: DE-GENZYME-POMP-1001711

PATIENT

DRUGS (1)
  1. MYOZYME [Suspect]
     Indication: GLYCOGEN STORAGE DISEASE TYPE II
     Dosage: UNK

REACTIONS (10)
  - CARDIAC DISORDER [None]
  - SPEECH DISORDER [None]
  - RESPIRATORY FAILURE [None]
  - GASTROOESOPHAGEAL REFLUX DISEASE [None]
  - PNEUMONIA [None]
  - FAILURE TO THRIVE [None]
  - DEATH [None]
  - MUSCLE CONTRACTURE [None]
  - INFECTION [None]
  - DYSPHAGIA [None]
